FAERS Safety Report 22387854 (Version 1)
Quarter: 2023Q2

REPORT INFORMATION
  Report Type: Spontaneous
  Country: US (occurrence: US)
  Receive Date: 20230531
  Receipt Date: 20230531
  Transmission Date: 20230721
  Serious: No
  Sender: FDA-Public Use
  Company Number: US-GALDERMA-US2023006740

PATIENT

DRUGS (8)
  1. PROACTIV MD ADAPALENE ACNE TREATMENT [Suspect]
     Active Substance: ADAPALENE
     Indication: Acne
     Dosage: 1 DOSAGE FORM, USED TWICE, THREE OR FOUR WEEKS
     Route: 061
     Dates: start: 2022, end: 2022
  2. PROACTIV MD ADAPALENE ACNE TREATMENT [Suspect]
     Active Substance: ADAPALENE
     Dosage: 1 DOSAGE FORM, USED TWICE, THREE OR FOUR WEEKS
     Route: 061
     Dates: start: 2022, end: 2022
  3. Proactiv MD Ultra Gentle Cleanser [Concomitant]
     Indication: Acne
     Dosage: 1 DOSAGE FORM, MONTHLY
     Route: 061
     Dates: start: 2022, end: 2022
  4. Proactiv MD Ultra Gentle Cleanser [Concomitant]
     Dosage: 1 DOSAGE FORM, MONTHLY
     Route: 061
     Dates: start: 2022, end: 2022
  5. Proactiv MD Ultra Hydrating Moisturizer [Concomitant]
     Indication: Acne
     Dosage: 1 DOSAGE FORM, MONTHLY
     Route: 061
     Dates: start: 2022, end: 2022
  6. Proactiv MD Ultra Hydrating Moisturizer [Concomitant]
     Dosage: 1 DOSAGE FORM, MONTHLY
     Route: 061
     Dates: start: 2022, end: 2022
  7. Proactiv Post Acne Dark Mark Relief [Concomitant]
     Indication: Acne
     Dosage: 1 DOSAGE FORM, MONTHLY
     Route: 061
     Dates: start: 2022, end: 2022
  8. Proactiv Post Acne Dark Mark Relief [Concomitant]
     Dosage: 1 DOSAGE FORM, MONTHLY
     Route: 061
     Dates: start: 2022, end: 2022

REACTIONS (6)
  - Skin burning sensation [Recovered/Resolved]
  - Rash [Recovered/Resolved]
  - Acne [Recovered/Resolved]
  - Flushing [Recovered/Resolved]
  - Underdose [Recovered/Resolved]
  - Inappropriate schedule of product administration [Recovered/Resolved]

NARRATIVE: CASE EVENT DATE: 20220101
